FAERS Safety Report 9828599 (Version 1)
Quarter: 2014Q1

REPORT INFORMATION
  Report Type: Spontaneous
  Country: IT (occurrence: IT)
  Receive Date: 20140117
  Receipt Date: 20140117
  Transmission Date: 20141002
  Serious: Yes (Hospitalization)
  Sender: FDA-Public Use
  Company Number: PHHY2014IT003990

PATIENT
  Sex: Female

DRUGS (6)
  1. BISOPROLOL [Suspect]
     Dosage: 10 MG, QD
     Route: 048
     Dates: start: 20131128, end: 20131203
  2. DILTIAZEM [Suspect]
     Dosage: 180 MG, ONCE/SINGLE
     Route: 048
     Dates: start: 20131202, end: 20131202
  3. COUMADINE [Concomitant]
  4. DOMPERIDONE [Concomitant]
  5. MAALOX [Concomitant]
  6. DEURSIL [Concomitant]

REACTIONS (1)
  - Bradycardia [Recovering/Resolving]
